FAERS Safety Report 18619035 (Version 1)
Quarter: 2020Q4

REPORT INFORMATION
  Report Type: Spontaneous
  Country: US (occurrence: US)
  Receive Date: 20201215
  Receipt Date: 20201215
  Transmission Date: 20210114
  Serious: No
  Sender: FDA-Public Use
  Company Number: US-FOAMIX PHARMACEUTICALS LTD.-2020US007075

PATIENT

DRUGS (1)
  1. ZILXI [Suspect]
     Active Substance: MINOCYCLINE HYDROCHLORIDE
     Indication: PRODUCT USED FOR UNKNOWN INDICATION
     Dosage: UNK
     Route: 065

REACTIONS (3)
  - Application site vesicles [Unknown]
  - Application site scab [Unknown]
  - Application site pain [Unknown]
